FAERS Safety Report 6636428-9 (Version None)
Quarter: 2010Q1

REPORT INFORMATION
  Report Type: 
  Country: None (occurrence: None)
  Receive Date: 20100311
  Receipt Date: 20100304
  Transmission Date: 20100710
  Serious: Yes (Hospitalization, Disabling)
  Sender: FDA-Public Use
  Company Number: 2010SP010518

PATIENT
  Age: 56 Year
  Sex: Male
  Weight: 80 kg

DRUGS (8)
  1. TEMODAL [Suspect]
     Indication: GLIOMA
     Dosage: 140 MG; PO
     Route: 048
     Dates: start: 20100118, end: 20100213
  2. BETAMETHASONE [Concomitant]
  3. DEPAKENE [Concomitant]
  4. LOSARTAN POTASSIUM AND HYDROCHLOROTHIAZIDE [Concomitant]
  5. NORVASC [Concomitant]
  6. DOXAZOSIN MESYLATE [Concomitant]
  7. MYSLEE [Concomitant]
  8. ZOFRAN [Concomitant]

REACTIONS (2)
  - CEREBRAL HAEMORRHAGE [None]
  - STATUS EPILEPTICUS [None]
